FAERS Safety Report 25183322 (Version 2)
Quarter: 2025Q2

REPORT INFORMATION
  Report Type: Spontaneous
  Country: JP (occurrence: JP)
  Receive Date: 20250410
  Receipt Date: 20250423
  Transmission Date: 20250717
  Serious: Yes (Hospitalization)
  Sender: GE HEALTHCARE
  Company Number: JP-GEHPL-2025JSU004120AA

PATIENT
  Age: 69 Year
  Sex: Male

DRUGS (1)
  1. OMNIPAQUE [Suspect]
     Active Substance: IOHEXOL
     Indication: Abdomen scan
     Route: 042
     Dates: start: 20250221, end: 20250221

REACTIONS (2)
  - Anaphylactic shock [Recovered/Resolved]
  - Arthralgia [Recovered/Resolved]

NARRATIVE: CASE EVENT DATE: 20250221
